FAERS Safety Report 16675202 (Version 2)
Quarter: 2019Q3

REPORT INFORMATION
  Report Type: Spontaneous
  Country: US (occurrence: US)
  Receive Date: 20190806
  Receipt Date: 20190820
  Transmission Date: 20191004
  Serious: Yes (Other)
  Sender: FDA-Public Use
  Company Number: US-ROCHE-2369028

PATIENT
  Age: 70 Year
  Sex: Female
  Weight: 89.89 kg

DRUGS (1)
  1. XOLAIR [Suspect]
     Active Substance: OMALIZUMAB
     Indication: ASTHMA
     Dosage: UNKNOWN
     Route: 065
     Dates: start: 2013

REACTIONS (1)
  - Carotid body tumour [Not Recovered/Not Resolved]

NARRATIVE: CASE EVENT DATE: 20190426
